FAERS Safety Report 24706066 (Version 2)
Quarter: 2025Q1

REPORT INFORMATION
  Report Type: Spontaneous
  Country: US (occurrence: US)
  Receive Date: 20241206
  Receipt Date: 20250108
  Transmission Date: 20250409
  Serious: No
  Sender: SANOFI AVENTIS
  Company Number: US-SA-2024SA357713

PATIENT
  Sex: Male

DRUGS (8)
  1. DUPIXENT [Suspect]
     Active Substance: DUPILUMAB
     Indication: Dermatitis atopic
     Dosage: 300 MG QOW
     Route: 058
     Dates: start: 20200804
  2. LEVOTHYROXINE [Concomitant]
     Active Substance: LEVOTHYROXINE
  3. WARFARIN [Concomitant]
     Active Substance: WARFARIN
  4. ATORVASTATIN [Concomitant]
     Active Substance: ATORVASTATIN
  5. ASPIRIN [Concomitant]
     Active Substance: ASPIRIN
  6. ASPIRIN [Concomitant]
     Active Substance: ASPIRIN
  7. LISINOPRIL [Concomitant]
     Active Substance: LISINOPRIL
  8. VITAMINS NOS [Concomitant]
     Active Substance: VITAMINS

REACTIONS (4)
  - Arthralgia [Not Recovered/Not Resolved]
  - Rash [Not Recovered/Not Resolved]
  - Discomfort [Not Recovered/Not Resolved]
  - Cardiac operation [Unknown]
